FAERS Safety Report 5655054-1 (Version None)
Quarter: 2008Q1

REPORT INFORMATION
  Report Type: 
  Country: None (occurrence: None)
  Receive Date: 20080307
  Receipt Date: 20071211
  Transmission Date: 20080703
  Serious: No
  Sender: FDA-Public Use
  Company Number: A0692349A

PATIENT
  Age: 28 Year
  Sex: Female

DRUGS (5)
  1. REQUIP [Suspect]
     Indication: RESTLESS LEGS SYNDROME
     Dosage: 2.5MG AT NIGHT
     Route: 048
     Dates: start: 20060301
  2. TRILEPTAL [Concomitant]
     Indication: MOOD SWINGS
     Dosage: 600MG TWICE PER DAY
     Route: 048
     Dates: start: 20051001
  3. BUPROPION HCL [Concomitant]
     Indication: DEPRESSION
     Dosage: 300MG IN THE MORNING
     Route: 048
     Dates: start: 20070605
  4. LAMICTAL [Concomitant]
     Indication: MOOD SWINGS
     Dosage: 200MG TWICE PER DAY
     Route: 048
     Dates: start: 20051001
  5. GEODON [Concomitant]
     Indication: MOOD SWINGS
     Dosage: 60MG AT NIGHT
     Route: 048
     Dates: start: 20070201

REACTIONS (2)
  - SOMNAMBULISM [None]
  - SOMNOLENCE [None]
